FAERS Safety Report 15824832 (Version 2)
Quarter: 2019Q1

REPORT INFORMATION
  Report Type: Spontaneous
  Country: KR (occurrence: KR)
  Receive Date: 20190115
  Receipt Date: 20190130
  Transmission Date: 20190417
  Serious: Yes (Death, Hospitalization, Other)
  Sender: FDA-Public Use
  Company Number: KR-009507513-1901KOR003119

PATIENT
  Sex: Male

DRUGS (35)
  1. KEYTRUDA [Suspect]
     Active Substance: PEMBROLIZUMAB
     Indication: SQUAMOUS CELL CARCINOMA OF HEAD AND NECK
     Dosage: UNK
     Dates: start: 20181106, end: 20181106
  2. IRCODON [Concomitant]
     Active Substance: OXYCODONE HYDROCHLORIDE
     Dosage: UNK
     Dates: start: 20181123
  3. IRCODON [Concomitant]
     Active Substance: OXYCODONE HYDROCHLORIDE
     Dosage: UNK
     Dates: start: 20181124
  4. HEPARIN [Concomitant]
     Active Substance: HEPARIN SODIUM
     Dosage: UNK
     Dates: start: 20181124
  5. KEYTRUDA [Suspect]
     Active Substance: PEMBROLIZUMAB
     Dosage: UNK
     Dates: start: 20181124, end: 20181124
  6. HEXAMEDINE [Concomitant]
     Dosage: UNK
     Dates: start: 20181029, end: 20181104
  7. SODIUM CHLORIDE. [Concomitant]
     Active Substance: SODIUM CHLORIDE
     Dosage: 100 MILLILITER, UNK
     Dates: start: 20181029
  8. MAGO [Concomitant]
     Dosage: UNK
     Dates: start: 20181029, end: 20181107
  9. IRCODON [Concomitant]
     Active Substance: OXYCODONE HYDROCHLORIDE
     Dosage: UNK
     Dates: start: 20181101, end: 20181106
  10. IRCODON [Concomitant]
     Active Substance: OXYCODONE HYDROCHLORIDE
     Dosage: UNK
     Dates: start: 20181107
  11. TARGIN [Concomitant]
     Active Substance: NALOXONE HYDROCHLORIDE\OXYCODONE HYDROCHLORIDE
     Dosage: UNK
     Dates: start: 20181029, end: 20181107
  12. IRCODON [Concomitant]
     Active Substance: OXYCODONE HYDROCHLORIDE
     Dosage: UNK
     Dates: start: 20181030, end: 20181104
  13. KEYTRUDA [Suspect]
     Active Substance: PEMBROLIZUMAB
     Dosage: UNK
     Dates: start: 20181216
  14. HEXAMEDINE [Concomitant]
     Dosage: UNK
     Dates: start: 20181123
  15. HEXAMEDINE [Concomitant]
     Dosage: UNK
     Dates: start: 20181124
  16. IRCODON [Concomitant]
     Active Substance: OXYCODONE HYDROCHLORIDE
     Dosage: UNK
     Dates: start: 20181105
  17. SANCUSO [Concomitant]
     Active Substance: GRANISETRON
     Dosage: UNK
     Dates: start: 20181029
  18. SODIUM CHLORIDE. [Concomitant]
     Active Substance: SODIUM CHLORIDE
     Dosage: 100 MILLILITER, UNK
     Dates: start: 20181106
  19. SODIUM CHLORIDE. [Concomitant]
     Active Substance: SODIUM CHLORIDE
     Dosage: 100 MILLILITER, UNK
     Dates: start: 20181123
  20. TARGIN [Concomitant]
     Active Substance: NALOXONE HYDROCHLORIDE\OXYCODONE HYDROCHLORIDE
     Dosage: UNK
     Dates: start: 20181123, end: 20181124
  21. MEGACE [Concomitant]
     Active Substance: MEGESTROL ACETATE
     Dosage: UNK
     Dates: start: 20181107
  22. MACPERAN [Concomitant]
     Active Substance: METOCLOPRAMIDE HYDROCHLORIDE
     Dosage: UNK
     Dates: start: 20181030
  23. MEPERIDINE HYDROCHLORIDE. [Concomitant]
     Active Substance: MEPERIDINE HYDROCHLORIDE
     Dosage: UNK
     Dates: start: 20181030
  24. SODIUM CHLORIDE. [Concomitant]
     Active Substance: SODIUM CHLORIDE
     Dosage: UNK
     Dates: start: 20181029
  25. SODIUM CHLORIDE. [Concomitant]
     Active Substance: SODIUM CHLORIDE
     Dosage: 50 MILLILITER, UNK
     Dates: start: 20181106
  26. SODIUM CHLORIDE. [Concomitant]
     Active Substance: SODIUM CHLORIDE
     Dosage: 50 MILLILITER, UNK
     Dates: start: 20181124
  27. HEXAMEDINE [Concomitant]
     Dosage: UNK
     Dates: start: 20181107
  28. MAGO [Concomitant]
     Dosage: UNK
     Dates: start: 20181123, end: 20181124
  29. MEGACE [Concomitant]
     Active Substance: MEGESTROL ACETATE
     Dosage: UNK
     Dates: start: 20181123, end: 20181124
  30. HEPARIN [Concomitant]
     Active Substance: HEPARIN SODIUM
     Dosage: UNK
     Dates: start: 20181101, end: 20181106
  31. HEPARIN [Concomitant]
     Active Substance: HEPARIN SODIUM
     Dosage: UNK
     Dates: start: 20181107
  32. HARTMANN DEX CHOONGWAE [Concomitant]
     Dosage: 50 MILLILITER, UNK
     Dates: start: 20181030
  33. SODIUM CHLORIDE. [Concomitant]
     Active Substance: SODIUM CHLORIDE
     Dosage: 1000 MILLILITER, UNK
     Dates: start: 20181029, end: 20181030
  34. SODIUM CHLORIDE. [Concomitant]
     Active Substance: SODIUM CHLORIDE
     Dosage: 1000 MILLILITER, UNK
     Dates: start: 20181123
  35. SODIUM CHLORIDE. [Concomitant]
     Active Substance: SODIUM CHLORIDE
     Dosage: 100 MILLILITER, UNK
     Dates: start: 20181124

REACTIONS (3)
  - Malignant neoplasm progression [Fatal]
  - Adverse event [Unknown]
  - Inappropriate schedule of product administration [Unknown]

NARRATIVE: CASE EVENT DATE: 201811
